FAERS Safety Report 9239655 (Version 1)
Quarter: 2013Q2

REPORT INFORMATION
  Report Type: Spontaneous
  Country: US (occurrence: US)
  Receive Date: 20130418
  Receipt Date: 20130418
  Transmission Date: 20140414
  Serious: No
  Sender: FDA-Public Use
  Company Number: US-PFIZER INC-2013120470

PATIENT
  Age: 83 Year
  Sex: Female
  Weight: 61.22 kg

DRUGS (13)
  1. XELJANZ [Suspect]
     Dosage: 5 MG, 2X/DAY
     Route: 048
  2. CENTRUM SILVER [Concomitant]
     Dosage: UNK
  3. JANUVIA [Concomitant]
     Dosage: 100 MG, UNK
  4. AMBIEN [Concomitant]
     Dosage: 10 MG, UNK
  5. CELEBREX [Concomitant]
     Dosage: 100 MG, UNK
  6. LASIX [Concomitant]
     Dosage: 20 MG, UNK
  7. AMLODIPINE [Concomitant]
     Dosage: 10 MG, UNK
  8. GABAPENTIN [Concomitant]
     Dosage: 100 MG, UNK
  9. GLIMEPIRIDE [Concomitant]
     Dosage: 2 MG, UNK
  10. PRILOSEC [Concomitant]
     Dosage: 20 MG, UNK
  11. VITAMIN D [Concomitant]
     Dosage: 50000 IU, UNK
  12. FOLIC ACID [Concomitant]
     Dosage: UNK
  13. CITRACAL + D [Concomitant]
     Dosage: UNK

REACTIONS (1)
  - Fatigue [Unknown]
